FAERS Safety Report 6929057-0 (Version None)
Quarter: 2010Q3

REPORT INFORMATION
  Report Type: 
  Country: None (occurrence: None)
  Receive Date: 20100817
  Receipt Date: 20100810
  Transmission Date: 20110219
  Serious: Yes (Death)
  Sender: FDA-Public Use
  Company Number: US-GENENTECH-304472

PATIENT
  Sex: Male
  Weight: 89.796 kg

DRUGS (4)
  1. RITUXAN [Suspect]
     Indication: CHRONIC LYMPHOCYTIC LEUKAEMIA
     Dosage: 375 MG/M2, Q4W
     Route: 042
     Dates: start: 20100527
  2. RITUXAN [Suspect]
     Indication: NON-HODGKIN'S LYMPHOMA
  3. BENDAMUSTINE [Suspect]
     Indication: CHRONIC LYMPHOCYTIC LEUKAEMIA
     Dosage: 90 MG/M2, QDX2
     Route: 065
  4. BENDAMUSTINE [Suspect]
     Indication: NON-HODGKIN'S LYMPHOMA

REACTIONS (3)
  - BLOOD BILIRUBIN INCREASED [None]
  - HAEMOLYTIC ANAEMIA [None]
  - THROMBOCYTOPENIA [None]
